FAERS Safety Report 6923854-3 (Version None)
Quarter: 2010Q3

REPORT INFORMATION
  Report Type: 
  Country: None (occurrence: None)
  Receive Date: 20100813
  Receipt Date: 20091023
  Transmission Date: 20110219
  Serious: Yes (Other)
  Sender: FDA-Public Use
  Company Number: US-BRISTOL-MYERS SQUIBB COMPANY-14828941

PATIENT
  Age: 62 Year
  Sex: Male

DRUGS (5)
  1. REYATAZ [Suspect]
     Indication: HIV INFECTION
  2. TRUVADA [Concomitant]
  3. RITONAVIR [Concomitant]
  4. DAPSONE [Concomitant]
  5. NPLATE [Concomitant]

REACTIONS (1)
  - HYPERBILIRUBINAEMIA [None]
